FAERS Safety Report 11991950 (Version 1)
Quarter: 2016Q1

REPORT INFORMATION
  Report Type: Spontaneous
  Country: US (occurrence: US)
  Receive Date: 20160203
  Receipt Date: 20160203
  Transmission Date: 20160526
  Serious: No
  Sender: FDA-Public Use
  Company Number: US-JNJFOC-20151216245

PATIENT
  Age: 57 Year
  Sex: Female
  Weight: 131.54 kg

DRUGS (8)
  1. SKELAXINE (ACETAMINOPHEN\CHLORZOXAZONE) [Concomitant]
     Active Substance: ACETAMINOPHEN\CHLORZOXAZONE
     Indication: BACK PAIN
     Dosage: AS NEEDED
     Route: 065
     Dates: start: 2007
  2. LEVOTHYROXINE. [Concomitant]
     Active Substance: LEVOTHYROXINE
     Indication: THYROID CANCER
     Dosage: 137
     Route: 065
     Dates: start: 2008
  3. HUMULIN R [Concomitant]
     Active Substance: INSULIN HUMAN
     Indication: DIABETES MELLITUS
     Route: 065
     Dates: start: 1992
  4. TYLENOL [Concomitant]
     Active Substance: ACETAMINOPHEN
     Indication: BACK PAIN
     Dosage: AS NEEDED
     Route: 065
     Dates: start: 2007
  5. MOTRIN [Suspect]
     Active Substance: IBUPROFEN
     Indication: PRODUCT USED FOR UNKNOWN INDICATION
     Route: 065
  6. MELOXICAM. [Concomitant]
     Active Substance: MELOXICAM
     Indication: PERIPHERAL SWELLING
     Dosage: AS NECESSARY
     Route: 065
     Dates: start: 2015
  7. TRAMADOL. [Concomitant]
     Active Substance: TRAMADOL
     Indication: BACK PAIN
     Dosage: AS NECESSARY
     Route: 065
     Dates: start: 2007
  8. INVOKANA [Suspect]
     Active Substance: CANAGLIFLOZIN
     Indication: TYPE 2 DIABETES MELLITUS
     Route: 048
     Dates: start: 201507, end: 20150907

REACTIONS (1)
  - Vulvovaginal mycotic infection [Recovered/Resolved]

NARRATIVE: CASE EVENT DATE: 201508
